FAERS Safety Report 20920344 (Version 1)
Quarter: 2022Q2

REPORT INFORMATION
  Report Type: Report from Study
  Country: AR (occurrence: AR)
  Receive Date: 20220606
  Receipt Date: 20220606
  Transmission Date: 20220721
  Serious: Yes (Hospitalization)
  Sender: FDA-Public Use
  Company Number: AR-NOVARTISPH-NVSC2022AR128820

PATIENT
  Sex: Female

DRUGS (1)
  1. HYDROCHLOROTHIAZIDE\VALSARTAN [Suspect]
     Active Substance: HYDROCHLOROTHIAZIDE\VALSARTAN
     Indication: Blood pressure increased
     Dosage: 1.5 DOSAGE FORM, QD OF 12.5/160 (UNIT NOT REPORTED)
     Route: 065
     Dates: start: 2007

REACTIONS (2)
  - Breast cancer [Recovered/Resolved]
  - Off label use [Recovered/Resolved]
